FAERS Safety Report 5770916-2 (Version None)
Quarter: 2008Q2

REPORT INFORMATION
  Report Type: 
  Country: None (occurrence: None)
  Receive Date: 20080613
  Receipt Date: 20080520
  Transmission Date: 20081010
  Serious: No
  Sender: FDA-Public Use
  Company Number: US-ABBOTT-08P-163-0452704-00

PATIENT
  Sex: Female
  Weight: 74.91 kg

DRUGS (10)
  1. HUMIRA [Suspect]
     Indication: RHEUMATOID ARTHRITIS
     Route: 058
     Dates: start: 20071001, end: 20080501
  2. VALSARTAN [Concomitant]
     Indication: HYPERTENSION
     Dosage: 80/12.5MG DAILY
     Route: 048
  3. DICLOSENAC [Concomitant]
     Indication: ARTHRITIS
     Route: 048
     Dates: start: 20080425
  4. ACETAMINOPHEN [Concomitant]
     Indication: PAIN
     Route: 048
  5. VITAMINS [Concomitant]
     Indication: VITAMIN SUPPLEMENTATION
     Route: 048
  6. IBUROFEN [Concomitant]
     Indication: PAIN
     Dosage: ALTERNATE WITH TYLENOL
     Route: 048
  7. PROPACET 100 [Concomitant]
     Indication: PAIN
     Route: 048
     Dates: start: 20080425
  8. AMITRIPTYLINE HCL [Concomitant]
     Indication: INSOMNIA
     Route: 048
     Dates: start: 20080425
  9. CALTRATE [Concomitant]
     Indication: MINERAL SUPPLEMENTATION
     Route: 048
  10. TOCOPHEROL CONCENTRATE CAP [Concomitant]
     Indication: VITAMIN SUPPLEMENTATION
     Route: 048

REACTIONS (3)
  - DRUG INEFFECTIVE [None]
  - MUSCULOSKELETAL STIFFNESS [None]
  - PAIN [None]
